FAERS Safety Report 8556686 (Version 3)
Quarter: 2012Q4

REPORT INFORMATION
  Report Type: Report from Study
  Country: DE (occurrence: DE)
  Receive Date: 20120510
  Receipt Date: 20121026
  Transmission Date: 20130627
  Serious: Yes (Hospitalization)
  Sender: FDA-Public Use
  Company Number: DE-TEVA-336741GER

PATIENT
  Age: 50 Year
  Sex: Female
  Weight: 77 kg

DRUGS (4)
  1. MYOCET [Suspect]
     Indication: BREAST CANCER
     Route: 042
     Dates: start: 20120112
  2. PACLITAXEL [Suspect]
     Indication: BREAST CANCER
     Dosage: 11.4286 mg/m2 Daily;
     Route: 042
     Dates: start: 20120112
  3. TRASTUZUMAB [Suspect]
     Indication: BREAST CANCER
     Dosage: .2857 mg/kg Daily;
     Route: 042
     Dates: start: 20120112
  4. LAPATINIB [Suspect]
     Indication: BREAST CANCER
     Route: 048
     Dates: start: 20120112

REACTIONS (1)
  - Palmar-plantar erythrodysaesthesia syndrome [Recovered/Resolved]
